FAERS Safety Report 8336203-3 (Version None)
Quarter: 2012Q2

REPORT INFORMATION
  Report Type: 
  Country: None (occurrence: None)
  Receive Date: 20120504
  Receipt Date: 20120426
  Transmission Date: 20120825
  Serious: Yes (Life-Threatening)
  Sender: FDA-Public Use
  Company Number: JP-CELGENEUS-087-50794-12040584

PATIENT
  Sex: Male
  Weight: 59 kg

DRUGS (6)
  1. AVELOX [Concomitant]
     Route: 065
     Dates: start: 20120207
  2. NAPROXEN [Concomitant]
     Route: 065
     Dates: start: 20120207
  3. RABEPRAZOLE SODIUM [Concomitant]
     Route: 065
     Dates: start: 20120207
  4. MAGNESIUM SULFATE [Concomitant]
     Route: 065
     Dates: start: 20120215
  5. VIDAZA [Suspect]
     Dosage: 75 MILLIGRAM/SQ. METER
     Route: 058
     Dates: start: 20110213, end: 20110219
  6. MOTILIUM [Concomitant]
     Route: 065
     Dates: start: 20120217

REACTIONS (1)
  - WHITE BLOOD CELL COUNT DECREASED [None]
